FAERS Safety Report 9563369 (Version 1)
Quarter: 2013Q3

REPORT INFORMATION
  Report Type: Spontaneous
  Country: US (occurrence: US)
  Receive Date: 20130927
  Receipt Date: 20130927
  Transmission Date: 20140515
  Serious: No
  Sender: FDA-Public Use
  Company Number: US-009507513-1309USA013036

PATIENT
  Age: 4 Year
  Sex: Male
  Weight: 15.42 kg

DRUGS (1)
  1. CLARITIN CHEWABLE TABLETS [Suspect]
     Indication: MALAISE
     Dosage: 10 MG, QD
     Route: 048
     Dates: start: 20130922

REACTIONS (2)
  - Overdose [Recovering/Resolving]
  - No adverse event [Recovering/Resolving]
